FAERS Safety Report 25110760 (Version 2)
Quarter: 2025Q2

REPORT INFORMATION
  Report Type: Spontaneous
  Country: GR (occurrence: GR)
  Receive Date: 20250324
  Receipt Date: 20250404
  Transmission Date: 20250717
  Serious: Yes (Death)
  Sender: TEVA
  Company Number: GR-TEVA-VS-3311931

PATIENT
  Age: 66 Year
  Sex: Male

DRUGS (1)
  1. GEMCITABINE [Suspect]
     Active Substance: GEMCITABINE
     Indication: Metastases to muscle
     Route: 065

REACTIONS (1)
  - Drug ineffective [Fatal]
